FAERS Safety Report 9508193 (Version 1)
Quarter: 2013Q3

REPORT INFORMATION
  Report Type: Spontaneous
  Country: US (occurrence: None)
  Receive Date: 20130906
  Receipt Date: 20130906
  Transmission Date: 20140515
  Serious: Yes (Life-Threatening, Hospitalization, Disabling)
  Sender: FDA-Public Use
  Company Number: None

PATIENT
  Age: 15 Year
  Sex: Female
  Weight: 25 kg

DRUGS (1)
  1. RITUXIMAB [Suspect]
     Indication: AUTOIMMUNE DISORDER
     Route: 042

REACTIONS (3)
  - Dementia [None]
  - Gait disturbance [None]
  - Hyperreflexia [None]
